FAERS Safety Report 9612097 (Version 2)
Quarter: 2014Q1

REPORT INFORMATION
  Report Type: Spontaneous
  Country: US (occurrence: US)
  Receive Date: 20131010
  Receipt Date: 20140113
  Transmission Date: 20141002
  Serious: Yes (Other)
  Sender: FDA-Public Use
  Company Number: US-ASTELLAS-2013US009866

PATIENT
  Sex: Female

DRUGS (20)
  1. MYRBETRIQ [Suspect]
     Indication: PRODUCT USED FOR UNKNOWN INDICATION
     Dosage: UNK
     Route: 048
     Dates: start: 20130715
  2. MYRBETRIQ [Suspect]
     Dosage: UNK
     Route: 048
  3. WARFARIN SODIUM [Concomitant]
     Indication: PRODUCT USED FOR UNKNOWN INDICATION
     Dosage: 5 MG, 1 TABLET ONCE A DAY
     Route: 048
  4. DILTIAZEM HCL [Concomitant]
     Indication: PRODUCT USED FOR UNKNOWN INDICATION
     Dosage: 120 MG, 1 TABLET BEFORE MEALS, TWICE A DAY
     Route: 048
  5. PRAVASTATIN SODIUM [Concomitant]
     Indication: PRODUCT USED FOR UNKNOWN INDICATION
     Dosage: 20 MG, UID/QD, 1 TABLET ONCE A DAY IN EVENING
     Route: 048
  6. METOPROLOL TARTRATE [Concomitant]
     Indication: PRODUCT USED FOR UNKNOWN INDICATION
     Dosage: 25 MG, BID, 1/2 TABLET TWICE A DAY
     Route: 048
  7. CELEBREX [Concomitant]
     Indication: PRODUCT USED FOR UNKNOWN INDICATION
     Dosage: 200 MG, BID, 1 CAPSULE TWICE A DAY
     Route: 048
  8. PRILOSEC                           /00661201/ [Concomitant]
     Indication: PRODUCT USED FOR UNKNOWN INDICATION
     Dosage: 20 MG, BID, 1 CAPSULE TWICE A DAY
     Route: 048
  9. SINGULAIR [Concomitant]
     Indication: PRODUCT USED FOR UNKNOWN INDICATION
     Dosage: 10 MG, UID/QD, 1 TABLET IN EVENING ONCE A DAY
     Route: 048
  10. ASPIRIN LOW [Concomitant]
     Indication: PRODUCT USED FOR UNKNOWN INDICATION
     Dosage: 81 MG, UID/QD, 1 TABLET ONCE A DAY
     Route: 048
  11. FENOFIBRATE [Concomitant]
     Indication: PRODUCT USED FOR UNKNOWN INDICATION
     Dosage: 134 MG, UID/QD, 1 CAPSULE WITH MEAL ONCE A DAY
     Route: 048
  12. VITAMINS /90003601/ [Concomitant]
     Indication: PRODUCT USED FOR UNKNOWN INDICATION
     Dosage: 1 DF, UID/QD, 1 TABLET ONCE A DAY
     Route: 048
  13. AMOXICILLIN [Concomitant]
     Indication: PRODUCT USED FOR UNKNOWN INDICATION
     Dosage: 500 MG, Q8 HOURS, 1 CAPSULE EVERY 8 HOURS
     Route: 048
  14. BENADRYL                           /00945501/ [Concomitant]
     Indication: RASH
     Dosage: 25 MG, UID/QD, 1 TABLET ONCE EVERY NIGHT AS NEEDED
     Route: 048
  15. MECLIZINE HCL [Concomitant]
     Indication: VERTIGO
     Dosage: 25 MG, TID, 1 TABLET THREE TIMES DAILY PRN
     Route: 048
  16. PROMETHAZINE [Concomitant]
     Indication: NAUSEA
     Dosage: 25 MG, UID/QD, 1 TABLET ONCE A DAY PRN
     Route: 048
  17. OSCAL 500 + D [Concomitant]
     Indication: PRODUCT USED FOR UNKNOWN INDICATION
     Dosage: 600 MG, UID/QD, 1 TABLET ONCE A DAY
     Route: 048
  18. DUONEB [Concomitant]
     Indication: PRODUCT USED FOR UNKNOWN INDICATION
     Dosage: 0.5-2.5 MG/3ML SOLUTION, QID, FOUR TIMES A DAY PRN
     Route: 050
  19. ALBUTEROL SULFATE [Concomitant]
     Indication: PRODUCT USED FOR UNKNOWN INDICATION
     Dosage: 108 (90BASE) MCG/ACT, 2 PUFFS AS NEEDED EVERY 4 HOURS
     Route: 055
  20. OXYGEN [Concomitant]
     Indication: PRODUCT USED FOR UNKNOWN INDICATION
     Dosage: 2 LITERS/MINUTE AS DIRECTED AT NIGHT
     Route: 055

REACTIONS (2)
  - Inappropriate schedule of drug administration [Unknown]
  - Rash [Recovering/Resolving]
